FAERS Safety Report 25352927 (Version 2)
Quarter: 2025Q2

REPORT INFORMATION
  Report Type: Spontaneous
  Country: GB (occurrence: GB)
  Receive Date: 20250523
  Receipt Date: 20250528
  Transmission Date: 20250716
  Serious: Yes (Other)
  Sender: SANDOZ
  Company Number: GB-SANDOZ-SDZ2025GB035562

PATIENT
  Sex: Female

DRUGS (1)
  1. TYRUKO [Suspect]
     Active Substance: NATALIZUMAB-SZTN
     Indication: Relapsing-remitting multiple sclerosis
     Route: 042
     Dates: start: 20241227

REACTIONS (4)
  - Multiple sclerosis relapse [Not Recovered/Not Resolved]
  - Adverse event [Unknown]
  - Quality of life decreased [Recovered/Resolved]
  - Product substitution issue [Unknown]

NARRATIVE: CASE EVENT DATE: 20241201
